FAERS Safety Report 12352282 (Version 1)
Quarter: 2016Q2

REPORT INFORMATION
  Report Type: Spontaneous
  Country: CH (occurrence: CH)
  Receive Date: 20160510
  Receipt Date: 20160510
  Transmission Date: 20160815
  Serious: Yes (Congenital Anomaly)
  Sender: FDA-Public Use
  Company Number: CH-PFIZER INC-2016248044

PATIENT
  Sex: Female
  Weight: 3.72 kg

DRUGS (3)
  1. XANAX [Suspect]
     Active Substance: ALPRAZOLAM
     Indication: MENTAL DISORDER
     Dosage: UNKNWON DOSE AS NEEDED
     Route: 064
  2. STILNOX [Suspect]
     Active Substance: ZOLPIDEM TARTRATE
     Indication: MENTAL DISORDER
     Dosage: UNKNOWN DOSE; AS NEEDED
     Route: 064
  3. ETIZOLAM [Suspect]
     Active Substance: ETIZOLAM
     Indication: MENTAL DISORDER
     Dosage: UNKNOWN DOSE, AS NEEDED
     Route: 064

REACTIONS (2)
  - Maternal exposure during pregnancy [Recovered/Resolved]
  - Haemangioma [Unknown]

NARRATIVE: CASE EVENT DATE: 201504
